FAERS Safety Report 10161712 (Version 1)
Quarter: 2014Q2

REPORT INFORMATION
  Report Type: Spontaneous
  Country: GB (occurrence: None)
  Receive Date: 20140507
  Receipt Date: 20140507
  Transmission Date: 20141212
  Serious: Yes (Disabling)
  Sender: FDA-Public Use
  Company Number: AUR-APL-2014-05299

PATIENT
  Age: 37 Year
  Sex: Female

DRUGS (2)
  1. CEFALEXIN (CEFALEXIN) [Suspect]
     Indication: PRODUCT USED FOR UNKNOWN INDICATION
     Dosage: UNKNOWN
     Dates: start: 20140417
  2. NITROFURANTOIN (NITROFURANTOIN) [Concomitant]

REACTIONS (2)
  - Rash [None]
  - Swelling face [None]
